FAERS Safety Report 8971655 (Version 1)
Quarter: 2012Q4

REPORT INFORMATION
  Report Type: 
  Country: US (occurrence: US)
  Receive Date: 20121217
  Receipt Date: 20121217
  Transmission Date: 20130627
  Serious: No
  Sender: FDA-Public Use
  Company Number: US-ABBOTT-12P-163-0903555-00

PATIENT

DRUGS (1)
  1. NIMBEX [Suspect]
     Indication: SURGERY

REACTIONS (3)
  - Incorrect dose administered [Recovered/Resolved]
  - Overdose [Recovered/Resolved]
  - Drug label confusion [Recovered/Resolved]
